FAERS Safety Report 8058551-7 (Version None)
Quarter: 2012Q1

REPORT INFORMATION
  Report Type: 
  Country: None (occurrence: None)
  Receive Date: 20120120
  Receipt Date: 20120116
  Transmission Date: 20120608
  Serious: Yes (Hospitalization)
  Sender: FDA-Public Use
  Company Number: JP-PFIZER INC-2012012140

PATIENT
  Age: 65 Year
  Sex: Male

DRUGS (2)
  1. RELPAX [Suspect]
     Indication: TINNITUS
  2. RELPAX [Suspect]
     Indication: HEADACHE
     Dosage: UNK
     Route: 048

REACTIONS (1)
  - VASCULAR STENOSIS [None]
